FAERS Safety Report 24134913 (Version 1)
Quarter: 2024Q3

REPORT INFORMATION
  Report Type: Spontaneous
  Country: US (occurrence: US)
  Receive Date: 20240725
  Receipt Date: 20240725
  Transmission Date: 20241016
  Serious: No
  Sender: GAMIDA CELL
  Company Number: US-GAMIDA CELL LTD.-GC-24US000012

PATIENT
  Sex: Male

DRUGS (1)
  1. OMISIRGE [Suspect]
     Active Substance: OMIDUBICEL-ONLV
     Indication: Product used for unknown indication
     Dosage: UNK
     Dates: start: 20240701, end: 20240701

REACTIONS (1)
  - Pyrexia [Not Recovered/Not Resolved]

NARRATIVE: CASE EVENT DATE: 20240701
